FAERS Safety Report 7677041-4 (Version None)
Quarter: 2011Q3

REPORT INFORMATION
  Report Type: 
  Country: None (occurrence: None)
  Receive Date: 20110811
  Receipt Date: 20110809
  Transmission Date: 20111222
  Serious: Yes (Hospitalization, Other)
  Sender: FDA-Public Use
  Company Number: CL-ROCHE-790359

PATIENT
  Sex: Male
  Weight: 60 kg

DRUGS (1)
  1. CAPECITABINE [Suspect]
     Indication: GASTRIC CANCER
     Dosage: 1500 MG IN THE MORNING AND 1500 MG AT NIGHT.
     Route: 048
     Dates: start: 20110528, end: 20110808

REACTIONS (2)
  - VOMITING [None]
  - ANGINA UNSTABLE [None]
